FAERS Safety Report 13159707 (Version 1)
Quarter: 2017Q1

REPORT INFORMATION
  Report Type: Spontaneous
  Country: IL (occurrence: IL)
  Receive Date: 20170127
  Receipt Date: 20170127
  Transmission Date: 20170428
  Serious: Yes (Other)
  Sender: FDA-Public Use
  Company Number: IL-SA-2017SA012389

PATIENT
  Age: 56 Year
  Sex: Male

DRUGS (2)
  1. VICTOZA [Concomitant]
     Active Substance: LIRAGLUTIDE
  2. LYXUMIA [Suspect]
     Active Substance: LIXISENATIDE
     Route: 065

REACTIONS (2)
  - Hepatic enzyme increased [Unknown]
  - Condition aggravated [Unknown]
